FAERS Safety Report 12366054 (Version 1)
Quarter: 2016Q2

REPORT INFORMATION
  Report Type: Spontaneous
  Country: AT (occurrence: AT)
  Receive Date: 20160513
  Receipt Date: 20160513
  Transmission Date: 20160815
  Serious: Yes (Hospitalization, Other)
  Sender: FDA-Public Use
  Company Number: AT-009507513-1604AUT004512

PATIENT
  Age: 50 Year
  Sex: Female
  Weight: 66 kg

DRUGS (1)
  1. KEYTRUDA [Suspect]
     Active Substance: PEMBROLIZUMAB
     Indication: MALIGNANT NEOPLASM OF RENAL PELVIS
     Dosage: 50 MG,ONCE IN THREE WEEKS (2MG/KG BODY WEIGHT)
     Route: 041
     Dates: start: 20160318

REACTIONS (6)
  - Inflammatory marker increased [Unknown]
  - General physical health deterioration [Unknown]
  - Cardiac arrest [Unknown]
  - Dyspnoea [Unknown]
  - Off label use [Unknown]
  - General physical health deterioration [Unknown]

NARRATIVE: CASE EVENT DATE: 20160318
